FAERS Safety Report 18563603 (Version 4)
Quarter: 2020Q4

REPORT INFORMATION
  Report Type: Spontaneous
  Country: AT (occurrence: AT)
  Receive Date: 20201201
  Receipt Date: 20201224
  Transmission Date: 20210114
  Serious: Yes (Other)
  Sender: FDA-Public Use
  Company Number: AT-AMGEN-AUTSP2020191565

PATIENT
  Age: 64 Year
  Sex: Female

DRUGS (8)
  1. BOSUTINIB [Concomitant]
     Active Substance: BOSUTINIB
     Dosage: UNK
  2. BOSUTINIB [Concomitant]
     Active Substance: BOSUTINIB
     Dosage: 500 MILLIGRAM
     Dates: start: 201604
  3. BOSUTINIB [Concomitant]
     Active Substance: BOSUTINIB
     Dosage: UNK
     Dates: start: 201606
  4. BLINCYTO [Suspect]
     Active Substance: BLINATUMOMAB
     Indication: ACUTE LYMPHOCYTIC LEUKAEMIA RECURRENT
     Dosage: 9 MICROGRAM
     Route: 065
     Dates: start: 20160125
  5. BLINCYTO [Suspect]
     Active Substance: BLINATUMOMAB
     Dosage: 28 MICROGRAM, QD
     Route: 065
     Dates: start: 201604
  6. BLINCYTO [Suspect]
     Active Substance: BLINATUMOMAB
     Dosage: 28 MICROGRAM
     Route: 065
  7. BLINCYTO [Suspect]
     Active Substance: BLINATUMOMAB
     Dosage: UNK
     Route: 065
     Dates: start: 201606, end: 201606
  8. PONATINIB [Concomitant]
     Active Substance: PONATINIB
     Dosage: UNK
     Dates: start: 201607

REACTIONS (5)
  - Graft versus host disease in liver [Recovered/Resolved]
  - Precursor B-lymphoblastic lymphoma [Unknown]
  - Off label use [Unknown]
  - Graft versus host disease in skin [Recovered/Resolved]
  - Graft versus host disease in gastrointestinal tract [Unknown]

NARRATIVE: CASE EVENT DATE: 2016
